FAERS Safety Report 21137396 (Version 1)
Quarter: 2022Q3

REPORT INFORMATION
  Report Type: Spontaneous
  Country: US (occurrence: US)
  Receive Date: 20220727
  Receipt Date: 20220727
  Transmission Date: 20221027
  Serious: Yes (Other)
  Sender: FDA-Public Use
  Company Number: US-PFIZER INC-PV202200007952

PATIENT

DRUGS (1)
  1. PREMARIN [Suspect]
     Active Substance: ESTROGENS, CONJUGATED
     Dosage: UNK (TWO WEEKS EVERY DAY AND THEN TWO TIMES A WEEK)

REACTIONS (4)
  - Haemorrhage [Unknown]
  - Neoplasm malignant [Unknown]
  - Hypertension [Unknown]
  - Off label use [Unknown]
